FAERS Safety Report 4430165-7 (Version None)
Quarter: 2004Q3

REPORT INFORMATION
  Report Type: 
  Country: None (occurrence: None)
  Receive Date: 20040820
  Receipt Date: 20040810
  Transmission Date: 20050211
  Serious: Yes (Hospitalization)
  Sender: FDA-Public Use
  Company Number: PHHO2004AR11384

PATIENT
  Age: 68 Year
  Sex: Female

DRUGS (3)
  1. ZELMAC / HTF 919A [Suspect]
     Indication: CONSTIPATION
     Dosage: 6 MG, QD
     Route: 048
  2. LIPITOR [Concomitant]
  3. AMLOC [Concomitant]

REACTIONS (2)
  - ABNORMAL FAECES [None]
  - DIVERTICULITIS [None]
